FAERS Safety Report 6457125-9 (Version None)
Quarter: 2009Q4

REPORT INFORMATION
  Report Type: 
  Country: None (occurrence: None)
  Receive Date: 20091125
  Receipt Date: 20091117
  Transmission Date: 20100525
  Serious: Yes (Hospitalization)
  Sender: FDA-Public Use
  Company Number: B0605001A

PATIENT
  Sex: Female

DRUGS (3)
  1. DEROXAT [Suspect]
     Indication: DEPRESSION
     Route: 048
     Dates: start: 20090521, end: 20090521
  2. TEGRETOL [Suspect]
     Indication: BIPOLAR DISORDER
     Route: 048
     Dates: start: 20090521, end: 20090521
  3. PROTHIADEN [Suspect]
     Route: 048
     Dates: start: 20090521, end: 20090521

REACTIONS (7)
  - BEZOAR [None]
  - CONFUSIONAL STATE [None]
  - DYSKINESIA [None]
  - HYPERTONIA [None]
  - MENTAL IMPAIRMENT [None]
  - SOMNOLENCE [None]
  - SUICIDE ATTEMPT [None]
